FAERS Safety Report 7332742-2 (Version None)
Quarter: 2011Q1

REPORT INFORMATION
  Report Type: 
  Country: None (occurrence: None)
  Receive Date: 20110304
  Receipt Date: 20101129
  Transmission Date: 20110831
  Serious: No
  Sender: FDA-Public Use
  Company Number: US-TYCO HEALTHCARE/MALLINCKRODT-T201002404

PATIENT
  Sex: Female
  Weight: 54.422 kg

DRUGS (1)
  1. RESTORIL [Suspect]
     Indication: INSOMNIA
     Dosage: 15 MG, Q HS PRN
     Route: 048
     Dates: start: 20040101

REACTIONS (1)
  - URINARY RETENTION [None]
